FAERS Safety Report 14403421 (Version 1)
Quarter: 2018Q1

REPORT INFORMATION
  Report Type: Spontaneous
  Country: US (occurrence: US)
  Receive Date: 20180116
  Receipt Date: 20180116
  Transmission Date: 20180509
  Serious: Yes (Other)
  Sender: FDA-Public Use
  Company Number: None

PATIENT
  Age: 27 Year
  Sex: Female

DRUGS (1)
  1. MYCOPHENOLATE TABS [Suspect]
     Active Substance: MYCOPHENOLIC ACID
     Indication: ERYTHEMA MULTIFORME
     Route: 048
     Dates: start: 20170929

REACTIONS (3)
  - Vomiting [None]
  - Nausea [None]
  - Night sweats [None]

NARRATIVE: CASE EVENT DATE: 201710
